FAERS Safety Report 26120565 (Version 1)
Quarter: 2025Q4

REPORT INFORMATION
  Report Type: Spontaneous
  Country: CA (occurrence: CA)
  Receive Date: 20251204
  Receipt Date: 20251204
  Transmission Date: 20260118
  Serious: Yes (Other)
  Sender: BRISTOL-MYERS SQUIBB COMPANY
  Company Number: CA-BRISTOL-MYERS SQUIBB COMPANY-2025-055229

PATIENT
  Age: 52 Year
  Sex: Female

DRUGS (1)
  1. KENALOG-10 [Suspect]
     Active Substance: TRIAMCINOLONE ACETONIDE
     Indication: Carpal tunnel syndrome

REACTIONS (11)
  - Skin discolouration [Unknown]
  - Inflammation [Unknown]
  - Paraesthesia [Unknown]
  - Burning sensation [Unknown]
  - Muscle atrophy [Unknown]
  - Asthenia [Unknown]
  - Off label use [Unknown]
  - Hypoaesthesia [Unknown]
  - Injection site swelling [Unknown]
  - Osteoarthritis [Unknown]
  - Therapeutic product effect incomplete [Unknown]
